FAERS Safety Report 12474386 (Version 1)
Quarter: 2016Q2

REPORT INFORMATION
  Report Type: Spontaneous
  Country: US (occurrence: None)
  Receive Date: 20160616
  Receipt Date: 20160616
  Transmission Date: 20160815
  Serious: Yes (Life-Threatening, Hospitalization)
  Sender: FDA-Public Use
  Company Number: None

PATIENT
  Age: 82 Year
  Sex: Male
  Weight: 88.45 kg

DRUGS (1)
  1. PRAMIPEXOLE 0.25MG TAB TAKE 1 TABLET EVERY NIGHT AND TITRATE AS DIRECTED [Suspect]
     Active Substance: PRAMIPEXOLE
     Indication: RESTLESS LEGS SYNDROME
     Dosage: 90 PILL 1/NIGHT MOUTH
     Route: 048
     Dates: start: 20151230, end: 20160329

REACTIONS (3)
  - Road traffic accident [None]
  - Loss of consciousness [None]
  - Somnolence [None]

NARRATIVE: CASE EVENT DATE: 20160329
